FAERS Safety Report 6810714-1 (Version None)
Quarter: 2010Q2

REPORT INFORMATION
  Report Type: 
  Country: None (occurrence: None)
  Receive Date: 20100629
  Receipt Date: 20100629
  Transmission Date: 20101027
  Serious: Yes (Other)
  Sender: FDA-Public Use
  Company Number: None

PATIENT
  Age: 58 Year
  Sex: Male
  Weight: 57.6068 kg

DRUGS (10)
  1. BUSPIRONE HYDROCHLORIDE [Suspect]
     Indication: ANXIETY DISORDER
     Dates: start: 20090526, end: 20091202
  2. DIVALPROEX SODIUM [Concomitant]
  3. RISPERDAL [Concomitant]
  4. FLUOXETINE [Concomitant]
  5. DOCUSATE [Concomitant]
  6. THERAPEUTIC-M VITAMIN [Concomitant]
  7. LORAZEPAM [Concomitant]
  8. CALCIUM CARBONATE [Concomitant]
  9. CHOLECALCIFEROL [Concomitant]
  10. SIMETHICONE [Concomitant]

REACTIONS (6)
  - AGGRESSION [None]
  - AGITATION [None]
  - BLISTER [None]
  - INSOMNIA [None]
  - OEDEMA PERIPHERAL [None]
  - RESTLESSNESS [None]
